FAERS Safety Report 10655607 (Version 1)
Quarter: 2014Q4

REPORT INFORMATION
  Report Type: Spontaneous
  Country: US (occurrence: None)
  Receive Date: 20141215
  Receipt Date: 20141215
  Transmission Date: 20150529
  Serious: Yes (Other)
  Sender: FDA-Public Use
  Company Number: None

PATIENT
  Age: 57 Year
  Sex: Female
  Weight: 58.97 kg

DRUGS (1)
  1. CLOBETASOLE [Suspect]
     Active Substance: CLOBETASOL
     Indication: DERMATITIS ATOPIC
     Dosage: APPLIED TO SURFACE, USUALLY THE SKIN
     Dates: end: 20141201

REACTIONS (8)
  - Drug effect decreased [None]
  - Skin exfoliation [None]
  - Skin burning sensation [None]
  - Pain [None]
  - Pruritus [None]
  - Steroid withdrawal syndrome [None]
  - Dermatitis atopic [None]
  - Skin discolouration [None]

NARRATIVE: CASE EVENT DATE: 20141213
